FAERS Safety Report 5037707-1 (Version None)
Quarter: 2006Q2

REPORT INFORMATION
  Report Type: 
  Country: None (occurrence: None)
  Receive Date: 20060628
  Receipt Date: 20060616
  Transmission Date: 20061013
  Serious: Yes (Hospitalization)
  Sender: FDA-Public Use
  Company Number: FR-BRISTOL-MYERS SQUIBB COMPANY-13425475

PATIENT
  Age: 55 Year
  Sex: Female

DRUGS (5)
  1. ENDOXAN [Suspect]
     Indication: OVARIAN CANCER
     Route: 042
     Dates: start: 20060516, end: 20060516
  2. CARBOPLATIN [Suspect]
     Indication: OVARIAN CANCER
     Route: 042
     Dates: start: 20060516, end: 20060516
  3. PLITICAN [Concomitant]
     Indication: PREMEDICATION
     Route: 042
     Dates: start: 20060516, end: 20060516
  4. SOLU-MEDROL [Concomitant]
     Indication: PREMEDICATION
     Route: 042
     Dates: start: 20060516, end: 20060516
  5. ZOFRAN [Concomitant]
     Indication: PREMEDICATION
     Route: 042
     Dates: start: 20060516, end: 20060516

REACTIONS (3)
  - HYPERHIDROSIS [None]
  - NAUSEA [None]
  - PRURITUS [None]
